FAERS Safety Report 12581483 (Version 1)
Quarter: 2016Q3

REPORT INFORMATION
  Report Type: Spontaneous
  Country: FR (occurrence: FR)
  Receive Date: 20160721
  Receipt Date: 20160721
  Transmission Date: 20161109
  Serious: Yes (Hospitalization, Other)
  Sender: FDA-Public Use
  Company Number: FR-ASTRAZENECA-2016SE75844

PATIENT
  Age: 3204 Week
  Sex: Female

DRUGS (5)
  1. TOPALGIC [Suspect]
     Active Substance: TRAMADOL
     Indication: PROCEDURAL PAIN
     Route: 048
     Dates: start: 20160617, end: 20160620
  2. INEXIUM [Suspect]
     Active Substance: ESOMEPRAZOLE
     Route: 048
     Dates: start: 20160617, end: 20160620
  3. DAFALGAN [Suspect]
     Active Substance: ACETAMINOPHEN
     Indication: PROCEDURAL PAIN
     Route: 048
     Dates: start: 20160617, end: 20160620
  4. VOLTARENE [Suspect]
     Active Substance: DICLOFENAC SODIUM
     Route: 048
     Dates: start: 20160617, end: 20160620
  5. DEBRIDAT [Suspect]
     Active Substance: TRIMEBUTINE MALEATE
     Route: 048
     Dates: start: 20160617, end: 20160620

REACTIONS (7)
  - Status epilepticus [Recovered/Resolved]
  - Vertigo [Unknown]
  - Headache [Unknown]
  - Hyperhidrosis [Unknown]
  - Hepatitis [Recovering/Resolving]
  - Urinary retention [Unknown]
  - Rhabdomyolysis [Recovering/Resolving]

NARRATIVE: CASE EVENT DATE: 20160620
